FAERS Safety Report 6398208-1 (Version None)
Quarter: 2009Q4

REPORT INFORMATION
  Report Type: 
  Country: None (occurrence: None)
  Receive Date: 20091013
  Receipt Date: 20090929
  Transmission Date: 20100525
  Serious: Yes (Other)
  Sender: FDA-Public Use
  Company Number: PHHY2009JP37372

PATIENT
  Age: 25 Year
  Sex: Female

DRUGS (6)
  1. TEGRETOL [Suspect]
     Indication: EPILEPSY
     Dosage: 600 MG DAILY
     Route: 048
  2. TEGRETOL [Suspect]
     Dosage: 600 MG DAILY
     Route: 048
  3. SEROQUEL [Concomitant]
     Dosage: UNK
     Route: 048
  4. RIVOTRIL [Concomitant]
     Dosage: UNK
     Route: 048
  5. HYPNOTICS AND SEDATIVES [Concomitant]
     Dosage: UNK
     Route: 048
  6. ANXIOLYTICS [Concomitant]
     Dosage: UNK
     Route: 048

REACTIONS (2)
  - ABORTION INDUCED [None]
  - DRUG EXPOSURE DURING PREGNANCY [None]
